FAERS Safety Report 6661854-1 (Version None)
Quarter: 2010Q1

REPORT INFORMATION
  Report Type: 
  Country: None (occurrence: None)
  Receive Date: 20100331
  Receipt Date: 20090826
  Transmission Date: 20100710
  Serious: No
  Sender: FDA-Public Use
  Company Number: US-BRISTOL-MYERS SQUIBB COMPANY-14739056

PATIENT
  Age: 61 Year
  Sex: Male
  Weight: 59 kg

DRUGS (3)
  1. ERBITUX [Suspect]
     Indication: HEAD AND NECK CANCER
  2. ERBITUX [Suspect]
     Indication: METASTASES TO LUNG
  3. HERCEPTIN [Concomitant]

REACTIONS (3)
  - MYOPIA [None]
  - PAIN OF SKIN [None]
  - RASH PRURITIC [None]
